FAERS Safety Report 7454614-5 (Version None)
Quarter: 2011Q2

REPORT INFORMATION
  Report Type: 
  Country: None (occurrence: None)
  Receive Date: 20110425
  Receipt Date: 20110419
  Transmission Date: 20111010
  Serious: Yes (Hospitalization)
  Sender: FDA-Public Use
  Company Number: SE-ACCORD-008781

PATIENT
  Age: 68 Year
  Sex: Male

DRUGS (9)
  1. FLUOROURACIL [Suspect]
     Indication: COLON CANCER METASTATIC
     Dosage: 4.80-G- / INTRAVENOUS
     Route: 042
     Dates: start: 20101101, end: 20101115
  2. LEVAXIN(LEVAXIN) [Concomitant]
  3. ATROPIN CHAUVIN(ATROPIN CHAUVIN) [Concomitant]
  4. NOVORAPID(NOVORAPID) [Concomitant]
  5. IRINOTECAN HCL [Suspect]
     Indication: COLON CANCER METASTATIC
     Dosage: 360.00-MG- / INTRAVENOUS
     Route: 042
     Dates: start: 20101101, end: 20101116
  6. BETAPRED(BETAPRED) [Concomitant]
  7. PRIMPERAN(PRIMPERAN) [Concomitant]
  8. ONDANSETRON [Concomitant]
  9. LANTUS(LANTUS) [Concomitant]

REACTIONS (3)
  - LOSS OF CONSCIOUSNESS [None]
  - CEREBRAL INFARCTION [None]
  - APHASIA [None]
